FAERS Safety Report 9482407 (Version 1)
Quarter: 2013Q3

REPORT INFORMATION
  Report Type: Spontaneous
  Country: AU (occurrence: AU)
  Receive Date: 20130828
  Receipt Date: 20130828
  Transmission Date: 20140515
  Serious: Yes (Other)
  Sender: FDA-Public Use
  Company Number: AU-PFIZER INC-2013246123

PATIENT
  Sex: Female

DRUGS (5)
  1. LYRICA [Suspect]
     Dosage: 25 MG, UNK
  2. LYRICA [Suspect]
     Dosage: 75MG OM AND 50MG ON
  3. OXYCODONE HYDROCHLORIDE [Concomitant]
     Indication: FIBROMYALGIA
     Dosage: UNK
  4. FENTANYL [Concomitant]
     Indication: FIBROMYALGIA
     Dosage: UNK
  5. TRAMADOL HYDROCHLORIDE [Concomitant]
     Indication: FIBROMYALGIA
     Dosage: UNK

REACTIONS (4)
  - Blood glucose increased [Unknown]
  - Malaise [Unknown]
  - Fall [Unknown]
  - Somnolence [Unknown]
